FAERS Safety Report 12582844 (Version 4)
Quarter: 2016Q3

REPORT INFORMATION
  Report Type: Report from Study
  Country: US (occurrence: US)
  Receive Date: 20160722
  Receipt Date: 20160826
  Transmission Date: 20161109
  Serious: Yes (Death, Other)
  Sender: FDA-Public Use
  Company Number: US-GILEAD-2016-0224650

PATIENT
  Age: 66 Year
  Sex: Male

DRUGS (4)
  1. SILDENAFIL. [Concomitant]
     Active Substance: SILDENAFIL
  2. REVATIO [Concomitant]
     Active Substance: SILDENAFIL CITRATE
  3. DILTIAZEM. [Concomitant]
     Active Substance: DILTIAZEM
  4. AMBRISENTAN [Suspect]
     Active Substance: AMBRISENTAN
     Indication: PRODUCT USED FOR UNKNOWN INDICATION
     Dosage: 10 MG, QD
     Route: 065
     Dates: start: 20150702

REACTIONS (8)
  - Malaise [Unknown]
  - Bedridden [Unknown]
  - Neoplasm malignant [Unknown]
  - Anxiety [Unknown]
  - Feeding tube user [Unknown]
  - Death [Fatal]
  - Constipation [Unknown]
  - Oedema [Unknown]

NARRATIVE: CASE EVENT DATE: 20160818
